FAERS Safety Report 8411477-9 (Version None)
Quarter: 2012Q2

REPORT INFORMATION
  Report Type: 
  Country: None (occurrence: None)
  Receive Date: 20120605
  Receipt Date: 20120508
  Transmission Date: 20120825
  Serious: No
  Sender: FDA-Public Use
  Company Number: US-AMGEN-USASP2012029089

PATIENT
  Age: 50 Year
  Sex: Female

DRUGS (1)
  1. ENBREL [Suspect]
     Indication: PSORIATIC ARTHROPATHY
     Dosage: 50 MG, QWK
     Dates: start: 20120201, end: 20120503

REACTIONS (5)
  - STRESS FRACTURE [None]
  - DYSPNOEA [None]
  - COUGH [None]
  - THROAT IRRITATION [None]
  - SINUS CONGESTION [None]
